FAERS Safety Report 12868931 (Version 1)
Quarter: 2016Q4

REPORT INFORMATION
  Report Type: Spontaneous
  Country: US (occurrence: US)
  Receive Date: 20161021
  Receipt Date: 20161021
  Transmission Date: 20170207
  Serious: No
  Sender: FDA-Public Use
  Company Number: US-PFIZER INC-2016489947

PATIENT
  Age: 18 Year
  Sex: Male

DRUGS (3)
  1. VINORELBINE TARTRATE. [Suspect]
     Active Substance: VINORELBINE TARTRATE
     Indication: RHABDOMYOSARCOMA
     Dosage: UNK
     Dates: start: 20160607
  2. CYTOXAN [Suspect]
     Active Substance: CYCLOPHOSPHAMIDE
     Indication: RHABDOMYOSARCOMA
     Dosage: UNK
     Dates: start: 20160607
  3. TEMSIROLIMUS [Suspect]
     Active Substance: TEMSIROLIMUS
     Indication: RHABDOMYOSARCOMA
     Dosage: UNK
     Dates: start: 20160607

REACTIONS (2)
  - Neoplasm progression [Unknown]
  - Product use issue [Unknown]
